FAERS Safety Report 9052371 (Version 1)
Quarter: 2013Q1

REPORT INFORMATION
  Report Type: Spontaneous
  Country: US (occurrence: US)
  Receive Date: 20130207
  Receipt Date: 20130207
  Transmission Date: 20140127
  Serious: Yes (Hospitalization)
  Sender: FDA-Public Use
  Company Number: US-PFIZER INC-2013047909

PATIENT
  Age: 60 Year
  Sex: Female
  Weight: 59 kg

DRUGS (13)
  1. CELEBREX [Suspect]
     Indication: BACK PAIN
     Dosage: UNK
  2. NEURONTIN [Suspect]
     Indication: BACK PAIN
     Dosage: UNK
  3. NEURONTIN [Suspect]
     Indication: NEUROPATHY PERIPHERAL
  4. ASPIRIN [Concomitant]
     Dosage: UNK, 1X/DAY
  5. ENABLEX [Concomitant]
     Dosage: UNK
  6. PARAFON FORTE [Concomitant]
     Dosage: UNK
  7. CYMBALTA [Concomitant]
     Dosage: UNK
  8. HYDROCODONE/ACETAMINOPHEN [Concomitant]
     Dosage: UNK
  9. TRAZODONE [Concomitant]
     Dosage: UNK
  10. TRAVATAN [Concomitant]
     Dosage: UNK
  11. CRESTOR [Concomitant]
     Dosage: UNK
  12. PREMARIN VAGINAL CREAM [Concomitant]
     Dosage: UNK
  13. FENOFIBRATE [Concomitant]
     Dosage: UNK

REACTIONS (3)
  - Myocardial infarction [Unknown]
  - Blood triglycerides increased [Unknown]
  - Blood cholesterol increased [Unknown]
